FAERS Safety Report 9959433 (Version 1)
Quarter: 2014Q1

REPORT INFORMATION
  Report Type: Report from Study
  Country: US (occurrence: US)
  Receive Date: 20140305
  Receipt Date: 20140305
  Transmission Date: 20141002
  Serious: No
  Sender: FDA-Public Use
  Company Number: US-ABBVIE-13P-163-1105669-00

PATIENT
  Age: 57 Year
  Sex: Male

DRUGS (13)
  1. HUMIRA [Suspect]
     Indication: RHEUMATOID ARTHRITIS
     Dates: start: 20130310
  2. ACIPHEX [Concomitant]
     Indication: GASTROOESOPHAGEAL REFLUX DISEASE
  3. NIFEDIPINE [Concomitant]
     Indication: BLOOD PRESSURE
  4. VALSARTAN [Concomitant]
     Indication: BLOOD PRESSURE
     Dosage: 320/12.5MG
  5. FENOGLIDE [Concomitant]
     Indication: BLOOD CHOLESTEROL INCREASED
  6. BYSTOLIC [Concomitant]
     Indication: BLOOD PRESSURE
  7. HYDROXYCHLOROQUINE [Concomitant]
     Indication: ANTIINFLAMMATORY THERAPY
  8. HYDROXYCHLOROQUINE [Concomitant]
     Indication: GOUT
  9. ALLOPURINOL [Concomitant]
     Indication: GOUT
  10. HYDROCODONE [Concomitant]
     Indication: ARTHRALGIA
     Dosage: 705/325MG
  11. MULTIVITAMIN [Concomitant]
     Indication: PRODUCT USED FOR UNKNOWN INDICATION
  12. FISH OIL [Concomitant]
     Indication: BLOOD CHOLESTEROL
  13. VITAMIN B COMPLEX [Concomitant]
     Indication: PRODUCT USED FOR UNKNOWN INDICATION

REACTIONS (3)
  - Gastric disorder [Recovering/Resolving]
  - Sleep disorder [Not Recovered/Not Resolved]
  - Vomiting [Not Recovered/Not Resolved]
